FAERS Safety Report 6968575-6 (Version None)
Quarter: 2010Q3

REPORT INFORMATION
  Report Type: 
  Country: None (occurrence: None)
  Receive Date: 20100907
  Receipt Date: 20100830
  Transmission Date: 20110219
  Serious: Yes (Hospitalization)
  Sender: FDA-Public Use
  Company Number: IT-TEVA-246796ISR

PATIENT
  Sex: Female

DRUGS (3)
  1. FLUOROURACIL [Suspect]
     Indication: COLON CANCER
     Route: 042
     Dates: start: 20100625, end: 20100714
  2. OXALIPLATIN [Suspect]
     Indication: COLON CANCER
     Route: 042
     Dates: start: 20100625, end: 20100712
  3. METHYLTETRAHYDROFOLATE (PREFOLIC) [Suspect]
     Indication: COLON CANCER
     Route: 042
     Dates: start: 20100625, end: 20100713

REACTIONS (2)
  - ATRIAL FIBRILLATION [None]
  - CARDIAC FAILURE [None]
